FAERS Safety Report 7368946-2 (Version None)
Quarter: 2011Q1

REPORT INFORMATION
  Report Type: 
  Country: None (occurrence: None)
  Receive Date: 20110323
  Receipt Date: 20110315
  Transmission Date: 20110831
  Serious: Yes (Other)
  Sender: FDA-Public Use
  Company Number: DE-JNJFOC-20110307099

PATIENT
  Sex: Female

DRUGS (1)
  1. IMODIUM AD [Suspect]
     Indication: ILL-DEFINED DISORDER
     Dosage: 2 CAPSULES
     Route: 048

REACTIONS (1)
  - CONVULSION [None]
